FAERS Safety Report 14256672 (Version 1)
Quarter: 2017Q4

REPORT INFORMATION
  Report Type: Spontaneous
  Country: US (occurrence: US)
  Receive Date: 20171206
  Receipt Date: 20171206
  Transmission Date: 20180321
  Serious: Yes (Other)
  Sender: FDA-Public Use
  Company Number: US-PFIZER INC-2017519204

PATIENT
  Age: 69 Year
  Sex: Female

DRUGS (2)
  1. LASIX [Suspect]
     Active Substance: FUROSEMIDE
     Dosage: 20 MG, UDTAB, ONCE DAILY, (30 MIN BEFORE MEAL)
     Route: 048
  2. ALDACTONE [Suspect]
     Active Substance: SPIRONOLACTONE
     Dosage: 25 MG, UDTAB, DAILY, (WITH A MEAL)
     Route: 048

REACTIONS (1)
  - Ejection fraction decreased [Unknown]
